FAERS Safety Report 20295694 (Version 1)
Quarter: 2022Q1

REPORT INFORMATION
  Report Type: Spontaneous
  Country: US (occurrence: US)
  Receive Date: 20220104
  Receipt Date: 20220104
  Transmission Date: 20220423
  Serious: No
  Sender: FDA-Public Use
  Company Number: US-COOPERSURGICAL, INC.-US-2021CPS002779

PATIENT
  Sex: Female

DRUGS (1)
  1. PARAGARD T 380A [Suspect]
     Active Substance: COPPER
     Indication: Product used for unknown indication
     Dosage: UNK
     Route: 015
     Dates: start: 2019

REACTIONS (5)
  - Vulvovaginal burning sensation [Recovered/Resolved]
  - Device expulsion [Unknown]
  - Vaginal discharge [Recovered/Resolved]
  - Dyspareunia [Unknown]
  - Fungal infection [None]

NARRATIVE: CASE EVENT DATE: 20210101
